FAERS Safety Report 17157628 (Version 1)
Quarter: 2019Q4

REPORT INFORMATION
  Report Type: Spontaneous
  Country: IN (occurrence: IN)
  Receive Date: 20191213
  Receipt Date: 20191213
  Transmission Date: 20200122
  Serious: No
  Sender: FDA-Public Use
  Company Number: None

PATIENT
  Age: 28 Year
  Sex: Male
  Weight: 69 kg

DRUGS (1)
  1. MINTOP [Suspect]
     Active Substance: MINOXIDIL
     Indication: ALOPECIA
     Dosage: ?          QUANTITY:5 SPRAY(S);?
     Route: 061
     Dates: start: 20191213

REACTIONS (3)
  - Headache [None]
  - Eye pain [None]
  - Abnormal sensation in eye [None]

NARRATIVE: CASE EVENT DATE: 20191213
